FAERS Safety Report 4358052-3 (Version None)
Quarter: 2004Q2

REPORT INFORMATION
  Report Type: 
  Country: None (occurrence: None)
  Receive Date: 20040514
  Receipt Date: 20040504
  Transmission Date: 20050107
  Serious: Yes (Other)
  Sender: FDA-Public Use
  Company Number: 200414760GDDC

PATIENT
  Age: 69 Year
  Sex: Female

DRUGS (10)
  1. LANTUS [Suspect]
  2. AMARYL [Concomitant]
     Indication: DIABETES MELLITUS
     Route: 048
     Dates: start: 20030602
  3. METFORMIN HCL [Concomitant]
     Indication: DIABETES MELLITUS
     Route: 048
     Dates: start: 20030602
  4. EFFOX [Concomitant]
     Indication: MYOCARDIAL ISCHAEMIA
     Route: 048
     Dates: start: 19980101
  5. DIGOXIN [Concomitant]
     Indication: SHOCK
     Route: 048
     Dates: start: 19980101
  6. ENARENAL [Concomitant]
     Indication: MYOCARDIAL ISCHAEMIA
     Route: 048
     Dates: start: 19980101
  7. INDAPAMIDE [Concomitant]
     Indication: HYPERTENSION
     Route: 048
     Dates: start: 20000101
  8. OXIS [Concomitant]
     Indication: BRONCHITIS CHRONIC
     Dates: start: 20030101
  9. OFTAN [Concomitant]
     Indication: GLAUCOMA
     Dates: start: 20030501
  10. LOVASTATIN [Concomitant]
     Indication: HYPERLIPIDAEMIA
     Route: 048
     Dates: start: 20031201

REACTIONS (1)
  - POSTMENOPAUSAL HAEMORRHAGE [None]
